FAERS Safety Report 5197884-9 (Version None)
Quarter: 2006Q4

REPORT INFORMATION
  Report Type: 
  Country: None (occurrence: None)
  Receive Date: 20061228
  Receipt Date: 20061215
  Transmission Date: 20070319
  Serious: Yes (Hospitalization)
  Sender: FDA-Public Use
  Company Number: E2020-00626-CLI-US

PATIENT
  Age: 80 Year
  Sex: Female
  Weight: 53 kg

DRUGS (13)
  1. DONEPEZIL HCL [Suspect]
     Indication: DEMENTIA ALZHEIMER'S TYPE
     Dosage: 10 MG, 1 IN 1 D, ORAL
     Route: 048
     Dates: start: 20050908, end: 20061129
  2. RASAGALINE [Suspect]
     Indication: DEMENTIA ALZHEIMER'S TYPE
     Dosage: 2 MG, 1 IN 1 D, ORAL
     Route: 048
     Dates: start: 20051205, end: 20061129
  3. DESONIDE [Concomitant]
  4. ATENOLOL [Concomitant]
  5. VICODIN [Concomitant]
  6. COUMADIN [Suspect]
     Indication: THROMBOSIS PROPHYLAXIS
     Dosage: SEE IMAGE
     Route: 048
     Dates: start: 20061017, end: 20060101
  7. COUMADIN [Suspect]
     Indication: THROMBOSIS PROPHYLAXIS
     Dosage: SEE IMAGE
     Route: 048
     Dates: start: 20060922, end: 20060926
  8. COUMADIN [Suspect]
     Indication: THROMBOSIS PROPHYLAXIS
     Dosage: SEE IMAGE
     Route: 048
     Dates: start: 20060928, end: 20061002
  9. COUMADIN [Suspect]
     Indication: THROMBOSIS PROPHYLAXIS
     Dosage: SEE IMAGE
     Route: 048
     Dates: start: 20061004, end: 20061009
  10. COUMADIN [Suspect]
     Indication: THROMBOSIS PROPHYLAXIS
     Dosage: SEE IMAGE
     Route: 048
     Dates: start: 20061009, end: 20061009
  11. COUMADIN [Suspect]
     Indication: THROMBOSIS PROPHYLAXIS
     Dosage: SEE IMAGE
     Route: 048
     Dates: start: 20061010, end: 20061013
  12. COUMADIN [Suspect]
     Indication: THROMBOSIS PROPHYLAXIS
     Dosage: SEE IMAGE
     Route: 048
     Dates: start: 20061015, end: 20061015
  13. COUMADIN [Suspect]
     Indication: THROMBOSIS PROPHYLAXIS
     Dosage: SEE IMAGE
     Route: 048
     Dates: start: 20061016, end: 20061016

REACTIONS (9)
  - ATRIAL FIBRILLATION [None]
  - DEEP VEIN THROMBOSIS [None]
  - HUMERUS FRACTURE [None]
  - HYPOTENSION [None]
  - INTERNATIONAL NORMALISED RATIO INCREASED [None]
  - LYMPHOMA [None]
  - METASTASIS [None]
  - PEPTIC ULCER [None]
  - UPPER GASTROINTESTINAL HAEMORRHAGE [None]
